FAERS Safety Report 7493834-0 (Version None)
Quarter: 2011Q2

REPORT INFORMATION
  Report Type: 
  Country: None (occurrence: None)
  Receive Date: 20110520
  Receipt Date: 20110518
  Transmission Date: 20111010
  Serious: Yes (Hospitalization)
  Sender: FDA-Public Use
  Company Number: AT-ABBOTT-10P-008-0686342-00

PATIENT
  Sex: Female
  Weight: 51 kg

DRUGS (7)
  1. MTX [Concomitant]
     Indication: RHEUMATOID ARTHRITIS
     Route: 065
  2. LYRICA [Concomitant]
     Indication: PAIN
     Route: 065
  3. HUMIRA [Suspect]
     Route: 065
     Dates: start: 20110502
  4. BONIVA [Suspect]
     Indication: OSTEOPOROSIS
     Route: 065
     Dates: start: 20040101
  5. MEDICATION FOR THE TREATMENT OF HYPERTENSION [Concomitant]
     Indication: HYPERTENSION
     Route: 065
  6. MEDICATION TO SAVE THE STOMACH [Concomitant]
     Indication: PRODUCT USED FOR UNKNOWN INDICATION
     Route: 065
  7. HUMIRA [Suspect]
     Indication: RHEUMATOID ARTHRITIS
     Route: 065
     Dates: start: 20090706, end: 20101101

REACTIONS (1)
  - JAW DISORDER [None]
